FAERS Safety Report 4927918-5 (Version None)
Quarter: 2006Q1

REPORT INFORMATION
  Report Type: 
  Country: None (occurrence: None)
  Receive Date: 20060223
  Receipt Date: 20060210
  Transmission Date: 20060701
  Serious: Yes (Hospitalization, Other)
  Sender: FDA-Public Use
  Company Number: HQWYE723929NOV05

PATIENT
  Age: 75 Year
  Sex: Male

DRUGS (2)
  1. PANTOPRAZOLE SODIUM [Suspect]
     Dosage: ^DF^ ORAL
     Route: 048
     Dates: start: 20051018, end: 20050101
  2. OMEPRAZOLE [Suspect]
     Dosage: ^DF^ ORAL
     Route: 048
     Dates: end: 20051018

REACTIONS (2)
  - DRUG ERUPTION [None]
  - PRURITUS [None]
